FAERS Safety Report 18078137 (Version 1)
Quarter: 2020Q3

REPORT INFORMATION
  Report Type: Spontaneous
  Country: US (occurrence: US)
  Receive Date: 20200727
  Receipt Date: 20200727
  Transmission Date: 20201103
  Serious: No
  Sender: FDA-Public Use
  Company Number: None

PATIENT
  Sex: Male

DRUGS (3)
  1. RISPERDAL CONSTA [Suspect]
     Active Substance: RISPERIDONE
     Dosage: ?          OTHER FREQUENCY:EVERY 2 WEEKS;?
     Route: 030
  2. ARIPIPRAZOLE 2.5MG [Suspect]
     Active Substance: ARIPIPRAZOLE
  3. RISPERIDONE 0.5MG [Suspect]
     Active Substance: RISPERIDONE

REACTIONS (3)
  - Headache [None]
  - Therapy change [None]
  - Erectile dysfunction [None]

NARRATIVE: CASE EVENT DATE: 20200108
